FAERS Safety Report 6329718-0 (Version None)
Quarter: 2009Q3

REPORT INFORMATION
  Report Type: 
  Country: None (occurrence: None)
  Receive Date: 20090826
  Receipt Date: 20090817
  Transmission Date: 20100115
  Serious: Yes (Death, Hospitalization)
  Sender: FDA-Public Use
  Company Number: DE-CELGENEUS-062-50794-09042339

PATIENT
  Sex: Male
  Weight: 74 kg

DRUGS (9)
  1. VIDAZA [Suspect]
     Route: 058
     Dates: start: 20090323
  2. AMLODIPINE [Concomitant]
     Indication: HYPERTENSION
     Route: 065
  3. BISOPROLOL [Concomitant]
     Indication: HYPERTENSION
     Route: 065
  4. TORASEMIDE [Concomitant]
     Indication: HYPERTENSION
     Route: 065
  5. ALLOPURINOL [Concomitant]
     Dosage: 100 1-0-0
     Route: 065
  6. PANTOPRAZOLE SODIUM [Concomitant]
     Dosage: 0-0-1
     Route: 065
  7. TAMSULOSINE [Concomitant]
     Indication: DRUG USE FOR UNKNOWN INDICATION
     Dosage: 0-0-1
     Route: 065
  8. HYDROXYUREA [Concomitant]
     Indication: DRUG USE FOR UNKNOWN INDICATION
     Route: 065
     Dates: start: 20081101, end: 20090101
  9. HYDROXYUREA [Concomitant]
     Route: 065
     Dates: start: 20090116

REACTIONS (3)
  - DEATH [None]
  - RENAL FAILURE [None]
  - URINARY TRACT INFECTION [None]
